FAERS Safety Report 4746650-4 (Version None)
Quarter: 2005Q3

REPORT INFORMATION
  Report Type: 
  Country: None (occurrence: None)
  Receive Date: 20050815
  Receipt Date: 20050801
  Transmission Date: 20060218
  Serious: Yes (Hospitalization)
  Sender: FDA-Public Use
  Company Number: S05-DEN-02288-02

PATIENT
  Sex: Male
  Weight: 2.711 kg

DRUGS (1)
  1. AKARIN (CITALOPRAM) [Suspect]
     Indication: DEPRESSION
     Dosage: 20 MG TID TRANSPLACENTAL
     Route: 064
     Dates: end: 20050405

REACTIONS (13)
  - ACIDOSIS [None]
  - APGAR SCORE LOW [None]
  - CONVULSION NEONATAL [None]
  - DACRYOCYSTITIS INFECTIVE [None]
  - DRUG EXPOSURE DURING PREGNANCY [None]
  - DRUG WITHDRAWAL SYNDROME NEONATAL [None]
  - HYPOCALCAEMIA [None]
  - HYPOTONIA NEONATAL [None]
  - NEONATAL ASPHYXIA [None]
  - OPHTHALMIA NEONATORUM [None]
  - ORAL CANDIDIASIS [None]
  - PREMATURE BABY [None]
  - PREMATURE RUPTURE OF MEMBRANES [None]
